FAERS Safety Report 7555259-9 (Version None)
Quarter: 2011Q2

REPORT INFORMATION
  Report Type: 
  Country: None (occurrence: None)
  Receive Date: 20110617
  Receipt Date: 20110613
  Transmission Date: 20111010
  Serious: Yes (Death, Other)
  Sender: FDA-Public Use
  Company Number: PHHY2011US29942

PATIENT
  Sex: Male

DRUGS (8)
  1. KYTRIL [Concomitant]
     Route: 048
  2. COLACE [Concomitant]
  3. AFINITOR [Suspect]
     Indication: HODGKIN'S DISEASE
     Dosage: 10 MG, DAILY
     Route: 048
     Dates: start: 20110309, end: 20110405
  4. OXYCODONE HCL [Concomitant]
     Indication: BACK PAIN
     Route: 048
  5. BENADRYL [Concomitant]
  6. LYRICA [Concomitant]
  7. BACTRIM [Concomitant]
     Route: 048
  8. FENTANYL-100 [Concomitant]
     Indication: BONE PAIN
     Dosage: 50 UG, UNK
     Route: 062

REACTIONS (10)
  - BLOOD UREA INCREASED [None]
  - BLOOD LACTATE DEHYDROGENASE INCREASED [None]
  - BLOOD CREATININE INCREASED [None]
  - MULTI-ORGAN FAILURE [None]
  - ALANINE AMINOTRANSFERASE INCREASED [None]
  - HAEMOGLOBIN DECREASED [None]
  - NEOPLASM MALIGNANT [None]
  - SERUM FERRITIN INCREASED [None]
  - ASPARTATE AMINOTRANSFERASE INCREASED [None]
  - WHITE BLOOD CELL COUNT DECREASED [None]
